FAERS Safety Report 4875062-8 (Version None)
Quarter: 2006Q1

REPORT INFORMATION
  Report Type: 
  Country: None (occurrence: None)
  Receive Date: 20060104
  Receipt Date: 20051220
  Transmission Date: 20060701
  Serious: Yes (Hospitalization)
  Sender: FDA-Public Use
  Company Number: 2005171130

PATIENT
  Age: 91 Year
  Sex: Female
  Weight: 37 kg

DRUGS (10)
  1. AMLODIPINE [Suspect]
     Indication: ILL-DEFINED DISORDER
     Dosage: 5 MG (EVERY DAY), ORAL
     Route: 048
     Dates: start: 20050701
  2. ATENOLOL [Suspect]
     Indication: ILL-DEFINED DISORDER
     Dosage: 50 MG (EVERY DAY), ORAL
     Route: 048
     Dates: start: 20050701
  3. OMEPRAZOLE [Concomitant]
  4. FORLAX             (MACROGOL) [Concomitant]
  5. FERROUS SULFATE TAB [Concomitant]
  6. OROCAL          (CALCIUM CARBONATE) [Concomitant]
  7. ACTONEL [Concomitant]
  8. FLUOXETINE [Suspect]
     Indication: ILL-DEFINED DISORDER
     Dosage: 10 MG (EVERY DAY), ORAL
     Route: 048
     Dates: start: 20050908
  9. PREVISCAN (FLUINDIONE) [Suspect]
     Indication: ILL-DEFINED DISORDER
     Dosage: ORAL
     Route: 048
     Dates: start: 20050601
  10. XATRAL (ALFUZOSIN) [Suspect]
     Indication: ILL-DEFINED DISORDER
     Dosage: 10 MG (EVERY DAY), ORAL
     Route: 048
     Dates: start: 20050701

REACTIONS (5)
  - ATRIAL FIBRILLATION [None]
  - FALL [None]
  - INTERNATIONAL NORMALISED RATIO FLUCTUATION [None]
  - PELVIC FRACTURE [None]
  - RENAL FAILURE [None]
